FAERS Safety Report 6082353-4 (Version None)
Quarter: 2009Q1

REPORT INFORMATION
  Report Type: 
  Country: None (occurrence: None)
  Receive Date: 20090218
  Receipt Date: 20090209
  Transmission Date: 20090719
  Serious: Yes (Other)
  Sender: FDA-Public Use
  Company Number: US-AVENTIS-200911143US

PATIENT
  Age: 50 Year
  Sex: Male

DRUGS (2)
  1. LANTUS [Suspect]
     Dates: start: 20070701
  2. LANTUS [Suspect]
     Dates: start: 20070701

REACTIONS (1)
  - AMYOTROPHIC LATERAL SCLEROSIS [None]
